FAERS Safety Report 12231481 (Version 1)
Quarter: 2016Q2

REPORT INFORMATION
  Report Type: Spontaneous
  Country: US (occurrence: US)
  Receive Date: 20160401
  Receipt Date: 20160401
  Transmission Date: 20160815
  Serious: No
  Sender: FDA-Public Use
  Company Number: US-WARNER CHILCOTT, LLC-1050112

PATIENT
  Age: 56 Year
  Sex: Female
  Weight: 49.09 kg

DRUGS (2)
  1. PROGESTERONE. [Concomitant]
     Active Substance: PROGESTERONE
  2. FEMRING [Suspect]
     Active Substance: ESTRADIOL ACETATE
     Indication: OESTROGEN REPLACEMENT THERAPY
     Route: 067

REACTIONS (2)
  - Chronic throat clearing [Not Recovered/Not Resolved]
  - Increased upper airway secretion [Not Recovered/Not Resolved]
